FAERS Safety Report 17223249 (Version 12)
Quarter: 2024Q2

REPORT INFORMATION
  Report Type: Report from Study
  Country: US (occurrence: US)
  Receive Date: 20200102
  Receipt Date: 20240524
  Transmission Date: 20240715
  Serious: Yes (Other)
  Sender: FDA-Public Use
  Company Number: US-SHIRE-US201945267

PATIENT
  Age: 62 Year
  Sex: Female
  Weight: 70 kg

DRUGS (27)
  1. HUMAN IMMUNOGLOBULIN G [Suspect]
     Active Substance: HUMAN IMMUNOGLOBULIN G
     Indication: Mononeuropathy multiplex
     Dosage: 40 GRAM, Q5WEEKS
     Route: 042
     Dates: start: 20180530
  2. HUMAN IMMUNOGLOBULIN G [Suspect]
     Active Substance: HUMAN IMMUNOGLOBULIN G
     Dosage: 40 GRAM
     Route: 042
     Dates: start: 20180531
  3. ACETAMINOPHEN [Concomitant]
     Active Substance: ACETAMINOPHEN
     Indication: Product used for unknown indication
     Dosage: UNK
     Route: 065
  4. DIPHENHYDRAMINE [Concomitant]
     Active Substance: DIPHENHYDRAMINE
     Indication: Product used for unknown indication
     Dosage: UNK
     Route: 065
  5. HEPARIN [Concomitant]
     Active Substance: HEPARIN SODIUM
     Indication: Product used for unknown indication
     Dosage: UNK
     Route: 065
  6. SODIUM CHLORIDE [Concomitant]
     Active Substance: SODIUM CHLORIDE
     Indication: Product used for unknown indication
     Dosage: UNK
     Route: 065
  7. EPINEPHRINE [Concomitant]
     Active Substance: EPINEPHRINE
     Indication: Product used for unknown indication
     Dosage: UNK
     Route: 065
  8. Lmx [Concomitant]
     Indication: Product used for unknown indication
     Dosage: UNK
     Route: 065
  9. ALPRAZOLAM [Concomitant]
     Active Substance: ALPRAZOLAM
     Indication: Product used for unknown indication
     Dosage: UNK
     Route: 065
  10. NAPROXEN [Concomitant]
     Active Substance: NAPROXEN
     Indication: Product used for unknown indication
     Dosage: UNK
     Route: 065
  11. BUSPIRONE [Concomitant]
     Active Substance: BUSPIRONE HYDROCHLORIDE
     Indication: Product used for unknown indication
     Dosage: UNK
     Route: 065
  12. PANTOPRAZOLE [Concomitant]
     Active Substance: PANTOPRAZOLE
     Dosage: UNK
     Route: 065
  13. HYDROCHLOROTHIAZIDE\LISINOPRIL [Concomitant]
     Active Substance: HYDROCHLOROTHIAZIDE\LISINOPRIL
     Indication: Product used for unknown indication
     Dosage: UNK
     Route: 065
  14. IBUPROFEN [Concomitant]
     Active Substance: IBUPROFEN
     Indication: Product used for unknown indication
     Dosage: UNK
     Route: 065
  15. SERTRALINE [Concomitant]
     Active Substance: SERTRALINE HYDROCHLORIDE
     Indication: Product used for unknown indication
     Dosage: UNK
     Route: 065
  16. PNEUMOVAX 23 [Concomitant]
     Active Substance: PNEUMOCOCCAL VACCINE, POLYVALENT 23
     Dosage: UNK
     Route: 065
  17. FLUBLOK [Concomitant]
     Active Substance: INFLUENZA A VIRUS A/CALIFORNIA/7/2009 (H1N1) RECOMBINANT HEMAGGLUTININ ANTIGEN\INFLUENZA A VIRUS A/V
     Dosage: UNK
     Route: 065
  18. CLONAZEPAM [Concomitant]
     Active Substance: CLONAZEPAM
     Dosage: UNK
     Route: 065
  19. MYCOPHENOLATE MOFETIL [Concomitant]
     Active Substance: MYCOPHENOLATE MOFETIL
     Dosage: UNK
     Route: 065
  20. Fluad quad [Concomitant]
     Dosage: UNK
     Route: 065
  21. DIPHENHYDRAMINE HYDROCHLORIDE [Concomitant]
     Active Substance: DIPHENHYDRAMINE HYDROCHLORIDE
     Dosage: UNK
     Route: 065
  22. BUSPIRONE HCL [Concomitant]
     Active Substance: BUSPIRONE HYDROCHLORIDE
     Dosage: UNK
     Route: 065
  23. SODIUM CHLORIDE;WATER [Concomitant]
     Dosage: UNK
     Route: 065
  24. SERTRALINE HYDROCHLORIDE [Concomitant]
     Active Substance: SERTRALINE HYDROCHLORIDE
     Dosage: UNK
     Route: 065
  25. BURN JEL PLUS [Concomitant]
     Active Substance: LIDOCAINE HYDROCHLORIDE
     Dosage: UNK
     Route: 065
  26. PANTOPRAZOLE SODIUM [Concomitant]
     Active Substance: PANTOPRAZOLE SODIUM
     Dosage: UNK
     Route: 065
  27. MODERNA COVID-19 VACCINE [Concomitant]
     Active Substance: ELASOMERAN
     Dosage: UNK
     Route: 065

REACTIONS (17)
  - Neuropathy peripheral [Unknown]
  - Haemarthrosis [Unknown]
  - Precancerous condition [Unknown]
  - Poor venous access [Unknown]
  - Thermal burn [Unknown]
  - Blister [Unknown]
  - Skin laceration [Unknown]
  - Actinic keratosis [Unknown]
  - Catheter site bruise [Unknown]
  - Infusion site scar [Unknown]
  - Device issue [Unknown]
  - Vomiting [Unknown]
  - Muscular weakness [Unknown]
  - Infusion site bruising [Unknown]
  - Infusion site pruritus [Unknown]
  - Anxiety [Unknown]
  - Product use in unapproved indication [Unknown]

NARRATIVE: CASE EVENT DATE: 20180530
